FAERS Safety Report 10991095 (Version 1)
Quarter: 2015Q2

REPORT INFORMATION
  Report Type: Spontaneous
  Country: US (occurrence: US)
  Receive Date: 20150406
  Receipt Date: 20150406
  Transmission Date: 20150821
  Serious: No
  Sender: FDA-Public Use
  Company Number: US-ASTRAZENECA-2015SE31643

PATIENT
  Age: 78 Year
  Sex: Female

DRUGS (20)
  1. MULTIVITAMINS [Concomitant]
     Active Substance: VITAMINS
  2. LEVOTHYROXINE SODIUM. [Concomitant]
     Active Substance: LEVOTHYROXINE SODIUM
  3. TRAMADOL [Concomitant]
     Active Substance: TRAMADOL
  4. SYMBICORT [Suspect]
     Active Substance: BUDESONIDE\FORMOTEROL FUMARATE DIHYDRATE
     Indication: PRODUCT USED FOR UNKNOWN INDICATION
     Dosage: UNKNOWN, BID
     Route: 055
  5. TYLENOL [Concomitant]
     Active Substance: ACETAMINOPHEN
  6. NYSTATIN-TRIAMCINOLONE [Concomitant]
  7. PROBIOTIC [Concomitant]
     Active Substance: PROBIOTICS NOS
  8. VERAPAMIL [Concomitant]
     Active Substance: VERAPAMIL HYDROCHLORIDE
  9. ESTRADIOL. [Concomitant]
     Active Substance: ESTRADIOL
  10. URIBEL [Concomitant]
     Active Substance: HYOSCYAMINE SULFATE\METHENAMINE\METHYLENE BLUE\PHENYL SALICYLATE\SODIUM PHOSPHATE, MONOBASIC, MONOHYDRATE
  11. VITAMIN C [Concomitant]
     Active Substance: ASCORBIC ACID
  12. FISH OIL [Concomitant]
     Active Substance: FISH OIL
  13. ATENOLOL+CHLORTHALIDONE [Suspect]
     Active Substance: ATENOLOL\CHLORTHALIDONE
     Indication: PRODUCT USED FOR UNKNOWN INDICATION
     Route: 048
  14. POLYETHYLENE GLYCOL [Concomitant]
     Active Substance: POLYETHYLENE GLYCOLS
  15. VENTOLIN [Concomitant]
     Active Substance: ALBUTEROL SULFATE
  16. ALPRAZOLAM. [Concomitant]
     Active Substance: ALPRAZOLAM
  17. CRANBERRY PILLS [Concomitant]
  18. CALCIUM [Concomitant]
     Active Substance: CALCIUM
  19. SIMVASTATIN. [Concomitant]
     Active Substance: SIMVASTATIN
  20. PREV MEDS [Concomitant]

REACTIONS (2)
  - Dyspnoea [Unknown]
  - Drug hypersensitivity [Unknown]
